FAERS Safety Report 9693324 (Version 1)
Quarter: 2013Q4

REPORT INFORMATION
  Report Type: Spontaneous
  Country: US (occurrence: US)
  Receive Date: 20131118
  Receipt Date: 20131118
  Transmission Date: 20140711
  Serious: Yes (Other)
  Sender: FDA-Public Use
  Company Number: US-009507513-1311USA005448

PATIENT
  Age: 54 Year
  Sex: Female

DRUGS (4)
  1. SINGULAIR [Suspect]
     Indication: RHINITIS ALLERGIC
     Route: 065
  2. SINGULAIR [Suspect]
     Indication: URTICARIA CHRONIC
  3. LAMICTAL [Concomitant]
  4. EFFEXOR [Concomitant]

REACTIONS (3)
  - Depression [Unknown]
  - Mood altered [Unknown]
  - Suicidal ideation [Unknown]
